FAERS Safety Report 5005333-6 (Version None)
Quarter: 2006Q2

REPORT INFORMATION
  Report Type: 
  Country: None (occurrence: None)
  Receive Date: 20060515
  Receipt Date: 20060501
  Transmission Date: 20061013
  Serious: Yes (Other)
  Sender: FDA-Public Use
  Company Number: 2005169960

PATIENT
  Age: 30 Year

DRUGS (6)
  1. ZYVOX [Suspect]
     Indication: OSTEOMYELITIS
     Dosage: 1200 MG (600 MG, 2 IN 1 D) ORAL
     Route: 048
     Dates: start: 20051130, end: 20051201
  2. ACETAMINOPHEN [Concomitant]
  3. VANCOMYCIN [Concomitant]
  4. MOXIFLOXACIN HCL [Concomitant]
  5. FAMOTIDINE [Concomitant]
  6. DIPHENHYDRAMINE HCL [Concomitant]

REACTIONS (11)
  - ARTHRALGIA [None]
  - AZOTAEMIA [None]
  - EOSINOPHILIA [None]
  - HAEMODIALYSIS [None]
  - NEPHRITIS INTERSTITIAL [None]
  - OLIGURIA [None]
  - PYREXIA [None]
  - RASH MACULO-PAPULAR [None]
  - RENAL FAILURE [None]
  - STAPHYLOCOCCAL INFECTION [None]
  - WHITE BLOOD CELL COUNT INCREASED [None]
